FAERS Safety Report 18552796 (Version 3)
Quarter: 2021Q4

REPORT INFORMATION
  Report Type: Report from Study
  Country: US (occurrence: US)
  Receive Date: 20201127
  Receipt Date: 20211029
  Transmission Date: 20220303
  Serious: Yes (Death, Hospitalization, Other)
  Sender: FDA-Public Use
  Company Number: US-ACADIA PHARMACEUTICALS INC.-ACA-2020-PIM-003729

PATIENT
  Age: 75 Year
  Sex: Male

DRUGS (1)
  1. NUPLAZID [Suspect]
     Active Substance: PIMAVANSERIN TARTRATE
     Indication: Parkinson^s disease
     Dosage: 34 MILLIGRAM, QD
     Route: 048

REACTIONS (13)
  - Death [Fatal]
  - Asthenia [Unknown]
  - Asthenia [Unknown]
  - Aphasia [Unknown]
  - Delirium [Unknown]
  - Hypophagia [Unknown]
  - Gait inability [Unknown]
  - Mental status changes [Unknown]
  - Blood pressure increased [Unknown]
  - Dysarthria [Unknown]
  - Fall [Unknown]
  - Agitation [Unknown]
  - Somnolence [Unknown]

NARRATIVE: CASE EVENT DATE: 20200801
